FAERS Safety Report 21008611 (Version 23)
Quarter: 2023Q1

REPORT INFORMATION
  Report Type: Report from Study
  Country: US (occurrence: US)
  Receive Date: 20220627
  Receipt Date: 20230308
  Transmission Date: 20230418
  Serious: Yes (Death, Hospitalization, Other)
  Sender: FDA-Public Use
  Company Number: US-TAKEDA-2022TUS042501

PATIENT
  Age: 68 Year
  Sex: Male

DRUGS (12)
  1. LANADELUMAB [Suspect]
     Active Substance: LANADELUMAB
     Indication: Immune system disorder
     Dosage: 300 MILLIGRAM, Q2WEEKS
     Route: 058
     Dates: start: 201906
  2. LANADELUMAB [Suspect]
     Active Substance: LANADELUMAB
     Indication: Hereditary angioedema
     Dosage: 300 MILLIGRAM, Q2WEEKS
     Route: 058
     Dates: start: 20100719
  3. LANADELUMAB [Suspect]
     Active Substance: LANADELUMAB
     Indication: Angioedema
     Dosage: 2 MILLILITER, Q2WEEKS
     Route: 058
     Dates: start: 20190626
  4. LANADELUMAB [Suspect]
     Active Substance: LANADELUMAB
     Dosage: 30 MILLIGRAM, Q2WEEKS
     Route: 058
     Dates: start: 20190626
  5. LANADELUMAB [Suspect]
     Active Substance: LANADELUMAB
     Dosage: 2 MILLILITER, Q2WEEKS
     Route: 058
     Dates: start: 20190627
  6. LANADELUMAB [Suspect]
     Active Substance: LANADELUMAB
     Dosage: 300 MILLIGRAM, Q2WEEKS
     Route: 058
     Dates: start: 20190626
  7. LANADELUMAB [Suspect]
     Active Substance: LANADELUMAB
     Dosage: 300 MILLIGRAM, Q2WEEKS
     Route: 058
     Dates: start: 20190627
  8. LANADELUMAB [Suspect]
     Active Substance: LANADELUMAB
     Dosage: 2 MILLILITER, Q2WEEKS
     Route: 058
     Dates: start: 202006
  9. LANADELUMAB [Suspect]
     Active Substance: LANADELUMAB
     Dosage: 300 MILLIGRAM, Q2WEEKS
     Route: 058
     Dates: start: 202007
  10. LANADELUMAB [Suspect]
     Active Substance: LANADELUMAB
     Dosage: 300 MILLIGRAM, Q2WEEKS
     Route: 058
     Dates: start: 20210915
  11. FIRAZYR [Suspect]
     Active Substance: ICATIBANT ACETATE
     Indication: Immune system disorder
     Dosage: 30 MILLIGRAM
     Route: 058
  12. FIRAZYR [Suspect]
     Active Substance: ICATIBANT ACETATE
     Indication: Immune system disorder
     Dosage: 30 MILLIGRAM
     Route: 058

REACTIONS (12)
  - Death [Fatal]
  - Dyspnoea [Unknown]
  - Lung neoplasm malignant [Unknown]
  - Hereditary angioedema [Not Recovered/Not Resolved]
  - Abdominal discomfort [Unknown]
  - Decreased appetite [Unknown]
  - Haemoglobin decreased [Unknown]
  - Constipation [Unknown]
  - Sinus disorder [Unknown]
  - Drug ineffective [Unknown]
  - Injection site bruising [Unknown]
  - Expired product administered [Unknown]

NARRATIVE: CASE EVENT DATE: 20220305
